FAERS Safety Report 16515697 (Version 1)
Quarter: 2019Q3

REPORT INFORMATION
  Report Type: Spontaneous
  Country: US (occurrence: US)
  Receive Date: 20190702
  Receipt Date: 20190702
  Transmission Date: 20191004
  Serious: Yes (Other)
  Sender: FDA-Public Use
  Company Number: None

PATIENT
  Age: 31 Year
  Sex: Female
  Weight: 54 kg

DRUGS (1)
  1. SUBOXONE [Suspect]
     Active Substance: BUPRENORPHINE HYDROCHLORIDE\NALOXONE HYDROCHLORIDE
     Route: 060

REACTIONS (6)
  - Fatigue [None]
  - Chills [None]
  - Headache [None]
  - Nasopharyngitis [None]
  - Withdrawal syndrome [None]
  - Cold sweat [None]

NARRATIVE: CASE EVENT DATE: 20190201
